FAERS Safety Report 12877046 (Version 2)
Quarter: 2016Q4

REPORT INFORMATION
  Report Type: Spontaneous
  Country: US (occurrence: US)
  Receive Date: 20161024
  Receipt Date: 20161206
  Transmission Date: 20170207
  Serious: Yes (Other)
  Sender: FDA-Public Use
  Company Number: US-PFIZER INC-2016491220

PATIENT
  Age: 10 Year
  Sex: Male

DRUGS (6)
  1. LEVOCARNITINE. [Concomitant]
     Active Substance: LEVOCARNITINE
     Dosage: UNK
     Dates: start: 2009
  2. UBIQUINOL [Concomitant]
     Active Substance: UBIQUINOL
     Dosage: UNK
     Dates: start: 2008
  3. MIRALAX [Concomitant]
     Active Substance: POLYETHYLENE GLYCOL 3350
     Dosage: UNK
     Dates: start: 2015
  4. B-COMPLEX/VITAMIN C/VITAMIN E/ZINC [Concomitant]
     Dosage: UNK
     Dates: start: 2006
  5. GENOTROPIN MQ [Suspect]
     Active Substance: SOMATROPIN
     Indication: PRADER-WILLI SYNDROME
     Dosage: 1 MG, 1X/DAY
     Dates: start: 20061101, end: 20160718
  6. EPA/DHA [Concomitant]
     Dosage: UNK
     Dates: start: 2006

REACTIONS (2)
  - Papilloedema [Unknown]
  - Benign intracranial hypertension [Unknown]

NARRATIVE: CASE EVENT DATE: 20160718
